FAERS Safety Report 6383588-3 (Version None)
Quarter: 2009Q4

REPORT INFORMATION
  Report Type: 
  Country: None (occurrence: None)
  Receive Date: 20091001
  Receipt Date: 20090923
  Transmission Date: 20100525
  Serious: Yes (Hospitalization)
  Sender: FDA-Public Use
  Company Number: PHEH2009US09998

PATIENT
  Sex: Male

DRUGS (4)
  1. EXELON [Suspect]
     Dosage: UNK
     Dates: start: 20090610
  2. EXELON [Suspect]
     Dosage: 6 MG, UNK
     Route: 048
     Dates: start: 20090825
  3. LIPITOR [Concomitant]
  4. ALTACE [Concomitant]

REACTIONS (4)
  - DIARRHOEA [None]
  - DYSPNOEA [None]
  - HYPERSENSITIVITY [None]
  - VOMITING [None]
